FAERS Safety Report 11701543 (Version 2)
Quarter: 2015Q4

REPORT INFORMATION
  Report Type: Spontaneous
  Country: US (occurrence: US)
  Receive Date: 20151105
  Receipt Date: 20151105
  Transmission Date: 20160304
  Serious: Yes (Other)
  Sender: FDA-Public Use
  Company Number: US-MALLINCKRODT-T201501352

PATIENT
  Age: 75 Year
  Sex: Female
  Weight: 82 kg

DRUGS (2)
  1. FENTANYL TRANSDERMAL SYSTEM [Suspect]
     Active Substance: FENTANYL
     Indication: PROCEDURAL PAIN
     Dosage: 100 UG/HR, Q48H
     Route: 062
  2. SYNTHROID [Concomitant]
     Active Substance: LEVOTHYROXINE SODIUM
     Dosage: UNK

REACTIONS (3)
  - Product adhesion issue [Unknown]
  - Drug withdrawal syndrome [Unknown]
  - Fall [Unknown]

NARRATIVE: CASE EVENT DATE: 201502
